FAERS Safety Report 4895706-4 (Version None)
Quarter: 2006Q1

REPORT INFORMATION
  Report Type: 
  Country: None (occurrence: None)
  Receive Date: 20060125
  Receipt Date: 20060103
  Transmission Date: 20060701
  Serious: Yes (Death)
  Sender: FDA-Public Use
  Company Number: USA-2006-0023277

PATIENT
  Sex: Male

DRUGS (1)
  1. MS CONTIN [Suspect]

REACTIONS (1)
  - DEATH [None]
